FAERS Safety Report 14088756 (Version 1)
Quarter: 2017Q4

REPORT INFORMATION
  Report Type: Spontaneous
  Country: US (occurrence: US)
  Receive Date: 20171013
  Receipt Date: 20171013
  Transmission Date: 20180321
  Serious: No
  Sender: FDA-Public Use
  Company Number: US-SA-2017SA159156

PATIENT
  Sex: Male

DRUGS (16)
  1. FLUTICASONE. [Concomitant]
     Active Substance: FLUTICASONE
     Dosage: STRENGTH: 50 MCG
     Route: 065
  2. TAMSULOSIN [Concomitant]
     Active Substance: TAMSULOSIN
     Dosage: STRENGTH: 0.4 MG
     Route: 065
  3. LORAZEPAM. [Concomitant]
     Active Substance: LORAZEPAM
     Dosage: STRENGTH: 1 MG
     Route: 065
  4. GABAPENTIN. [Concomitant]
     Active Substance: GABAPENTIN
     Dosage: STRENGTH: 100 MG
     Route: 065
  5. NUVIGIL [Concomitant]
     Active Substance: ARMODAFINIL
     Dosage: STRENGHT: 150 MG
     Route: 065
  6. CLINDAMYCIN. [Concomitant]
     Active Substance: CLINDAMYCIN
     Dosage: STRENGTH: 150 MG
     Route: 065
  7. DONEPEZIL. [Concomitant]
     Active Substance: DONEPEZIL
     Dosage: STRENGTH: 10 MG
     Route: 065
  8. NIFEDICAL XL [Concomitant]
     Active Substance: NIFEDIPINE
     Dosage: STRENGTH: 60 MG
     Route: 065
  9. IPRATROPIUM [Concomitant]
     Active Substance: IPRATROPIUM
     Dosage: STRENGTH: 0.03%
     Route: 065
  10. SUDAFED [Concomitant]
     Active Substance: PSEUDOEPHEDRINE HYDROCHLORIDE
     Dosage: STRENGTH: 30MG
     Route: 065
  11. CLONAZEPAM. [Concomitant]
     Active Substance: CLONAZEPAM
     Dosage: STRENGTH: 2 MG
     Route: 065
  12. FLUOXETINE [Concomitant]
     Active Substance: FLUOXETINE HYDROCHLORIDE
     Dosage: STRENGTH: 40 MG
     Route: 065
  13. OXYBUTYNIN. [Concomitant]
     Active Substance: OXYBUTYNIN CHLORIDE
     Dosage: STRENGTH: 10 MG
     Route: 065
  14. LANSOPRAZOLE. [Concomitant]
     Active Substance: LANSOPRAZOLE
     Dosage: STRENGTH: 30 MG
     Route: 065
  15. AUBAGIO [Suspect]
     Active Substance: TERIFLUNOMIDE
     Indication: PRODUCT USED FOR UNKNOWN INDICATION
     Route: 048
  16. AVODART [Concomitant]
     Active Substance: DUTASTERIDE
     Dosage: STRENGTH: 0.5 MG
     Route: 065

REACTIONS (2)
  - Urticaria [Not Recovered/Not Resolved]
  - Dyspnoea [Not Recovered/Not Resolved]
